FAERS Safety Report 9708446 (Version 3)
Quarter: 2014Q1

REPORT INFORMATION
  Report Type: Spontaneous
  Country: US (occurrence: US)
  Receive Date: 20131125
  Receipt Date: 20140109
  Transmission Date: 20141002
  Serious: Yes (Hospitalization)
  Sender: FDA-Public Use
  Company Number: US-PFIZER INC-2013334765

PATIENT
  Age: 61 Year
  Sex: Female
  Weight: 84.81 kg

DRUGS (3)
  1. LYRICA [Suspect]
     Indication: FIBROMYALGIA
     Dosage: 75 MG, 3X/DAY
  2. ADDERALL [Suspect]
     Indication: ATTENTION DEFICIT/HYPERACTIVITY DISORDER
     Dosage: UNK
     Dates: start: 2011
  3. IMIPRAMINE [Concomitant]
     Dosage: UNK

REACTIONS (3)
  - Nerve compression [Unknown]
  - Intervertebral disc disorder [Unknown]
  - Tongue ulceration [Recovered/Resolved]
